FAERS Safety Report 5797404-1 (Version None)
Quarter: 2008Q3

REPORT INFORMATION
  Report Type: 
  Country: None (occurrence: None)
  Receive Date: 20080701
  Receipt Date: 20080609
  Transmission Date: 20090109
  Serious: No
  Sender: FDA-Public Use
  Company Number: US-BOEHRINGER INGELHEIM GMBH, GERMANY-2008-BP-07883BP

PATIENT
  Sex: Male

DRUGS (9)
  1. FLOMAX [Suspect]
     Indication: NOCTURIA
     Dates: start: 20080401, end: 20080501
  2. ATENOLOL [Concomitant]
  3. ETODULAC [Concomitant]
  4. LISINOPRIL [Concomitant]
  5. LOVASTATIN [Concomitant]
  6. SAW PALMETTO [Concomitant]
  7. FIBER TABLETS [Concomitant]
  8. GLUCOSAMINE-CHRONDITIN [Concomitant]
  9. ASPIRIN [Concomitant]

REACTIONS (2)
  - INSOMNIA [None]
  - NOCTURIA [None]
